FAERS Safety Report 15866841 (Version 1)
Quarter: 2019Q1

REPORT INFORMATION
  Report Type: Spontaneous
  Country: US (occurrence: US)
  Receive Date: 20190102
  Receipt Date: 20190102
  Transmission Date: 20190417
  Serious: No
  Sender: FDA-Public Use
  Company Number: None

PATIENT
  Age: 73 Year
  Weight: 72.57 kg

DRUGS (1)
  1. FORTEO [Suspect]
     Active Substance: TERIPARATIDE
     Dosage: STRENGTH 600 MCG/2.4 ML PEN INJ
     Route: 058

REACTIONS (4)
  - Fatigue [None]
  - Product dose omission [None]
  - Endodontic procedure [None]
  - Abscess [None]
